FAERS Safety Report 7622002-4 (Version None)
Quarter: 2011Q3

REPORT INFORMATION
  Report Type: 
  Country: None (occurrence: None)
  Receive Date: 20110720
  Receipt Date: 20100909
  Transmission Date: 20111222
  Serious: Yes (Hospitalization, Other)
  Sender: FDA-Public Use
  Company Number: US-BAYER-201025810NA

PATIENT
  Age: 48 Year
  Sex: Female
  Weight: 90.703 kg

DRUGS (13)
  1. CYMBALTA [Concomitant]
     Indication: DEPRESSION
     Dosage: 20 MG, UNK
  2. YAZ [Suspect]
     Indication: MENOPAUSAL SYMPTOMS
  3. ADVAIR DISKUS 100/50 [Concomitant]
     Indication: ASTHMA
  4. PRILOSEC [Concomitant]
     Indication: GASTROOESOPHAGEAL REFLUX DISEASE
     Dosage: 20 MG, UNK
  5. SINGULAIR [Concomitant]
     Indication: MULTIPLE ALLERGIES
     Dosage: 20 MG/D, UNK
     Route: 048
  6. OMEGA COMBINATION [Concomitant]
  7. FLONASE [Concomitant]
     Indication: MULTIPLE ALLERGIES
     Route: 045
  8. YAZ [Suspect]
     Indication: PREMENSTRUAL SYNDROME
     Route: 048
     Dates: start: 20070810, end: 20071130
  9. LEXAPRO [Concomitant]
     Indication: DEPRESSION
     Dosage: 20 MG, UNK
     Route: 048
  10. HERBAL PREPARATION [Concomitant]
     Dosage: 1200 MG, UNK
  11. ASCORBIC ACID [Concomitant]
     Dosage: 1000 MG, UNK
  12. LIVER CLEANSE [Concomitant]
  13. ALBUTEROL SULFATE AUTOHALER [Concomitant]
     Indication: ASTHMA

REACTIONS (4)
  - PULMONARY INFARCTION [None]
  - MUSCULOSKELETAL PAIN [None]
  - PULMONARY EMBOLISM [None]
  - PLEURISY [None]
